FAERS Safety Report 9234604 (Version 3)
Quarter: 2013Q2

REPORT INFORMATION
  Report Type: Spontaneous
  Country: US (occurrence: US)
  Receive Date: 20130416
  Receipt Date: 20130628
  Transmission Date: 20140414
  Serious: No
  Sender: FDA-Public Use
  Company Number: US-PFIZER INC-2013115757

PATIENT
  Sex: Male

DRUGS (1)
  1. TIKOSYN [Suspect]
     Dosage: UNK

REACTIONS (3)
  - Drug interaction [Unknown]
  - Infection [Unknown]
  - International normalised ratio increased [Unknown]
